FAERS Safety Report 12698965 (Version 2)
Quarter: 2016Q4

REPORT INFORMATION
  Report Type: Spontaneous
  Country: JP (occurrence: JP)
  Receive Date: 20160830
  Receipt Date: 20161006
  Transmission Date: 20170207
  Serious: Yes (Hospitalization, Other)
  Sender: FDA-Public Use
  Company Number: JP-MYLANLABS-2016M1035465

PATIENT

DRUGS (4)
  1. LOXOPROFEN [Suspect]
     Active Substance: LOXOPROFEN
     Indication: PAIN IN EXTREMITY
     Route: 065
  2. WARFARIN [Suspect]
     Active Substance: WARFARIN
     Indication: CORONARY ARTERY ANEURYSM
     Dosage: UNK
     Route: 048
  3. BAYASPIRIN [Suspect]
     Active Substance: ASPIRIN
     Indication: CORONARY ARTERY ANEURYSM
     Route: 048
  4. BUCOLOME [Interacting]
     Active Substance: BUCOLOME
     Indication: CORONARY ARTERY ANEURYSM
     Route: 065

REACTIONS (9)
  - Epistaxis [Recovering/Resolving]
  - Drug interaction [Unknown]
  - Haematoma [Recovering/Resolving]
  - Pain in extremity [Recovering/Resolving]
  - Anaemia [Recovering/Resolving]
  - Gait disturbance [Recovering/Resolving]
  - International normalised ratio increased [Recovering/Resolving]
  - Haemorrhage subcutaneous [Recovering/Resolving]
  - Haematuria [Recovering/Resolving]
